FAERS Safety Report 10226559 (Version 1)
Quarter: 2014Q2

REPORT INFORMATION
  Report Type: Spontaneous
  Country: US (occurrence: US)
  Receive Date: 20140609
  Receipt Date: 20140609
  Transmission Date: 20141212
  Serious: No
  Sender: FDA-Public Use
  Company Number: US-AMGEN INC.-USASP2014028793

PATIENT
  Age: 64 Year
  Sex: Female
  Weight: 65.31 kg

DRUGS (9)
  1. PROCRIT [Suspect]
     Indication: RENAL FAILURE CHRONIC
     Dosage: 4000 UNK, QWK
     Route: 058
     Dates: start: 201403
  2. CARVEDILOL [Concomitant]
     Indication: CARDIAC DISORDER
     Dosage: 12.5 MG, BID
     Route: 048
     Dates: start: 2012
  3. LEVOTHYROXINE [Concomitant]
     Indication: THYROID DISORDER
     Dosage: 0.100 MUG, QD
     Route: 048
     Dates: start: 2011
  4. CLOPIDOGREL [Concomitant]
     Indication: CARDIAC DISORDER
     Dosage: 75 MG, DAIIY M-F
     Route: 048
     Dates: start: 2012
  5. JANUVIA [Concomitant]
     Indication: DIABETES MELLITUS
     Dosage: 25 MG, QD
     Route: 048
     Dates: start: 2013
  6. PRAVASTATIN [Concomitant]
     Indication: BLOOD CHOLESTEROL ABNORMAL
     Dosage: 40 MG, QD
     Route: 048
     Dates: start: 2012
  7. DIOVAN [Concomitant]
     Dosage: 40 MG, QD
     Route: 048
     Dates: start: 2013
  8. VITAMIN B-12 [Concomitant]
     Dosage: UNK
  9. SODIUM BICARBONATE [Concomitant]
     Indication: RENAL DISORDER
     Dosage: 650 MG, QD
     Route: 048
     Dates: start: 2013

REACTIONS (1)
  - Haemoglobin decreased [Not Recovered/Not Resolved]
